FAERS Safety Report 7553052-4 (Version None)
Quarter: 2011Q2

REPORT INFORMATION
  Report Type: 
  Country: None (occurrence: None)
  Receive Date: 20110616
  Receipt Date: 20110614
  Transmission Date: 20111010
  Serious: Yes (Other)
  Sender: FDA-Public Use
  Company Number: FR-ALLERGAN-1108016US

PATIENT
  Age: 45 Year
  Sex: Male

DRUGS (2)
  1. BOTOX [Suspect]
     Indication: DYSTONIA
     Dosage: 50 UNITS, SINGLE
     Route: 030
     Dates: start: 20110203, end: 20110203
  2. BOTOX [Suspect]
     Indication: FOOT DEFORMITY
     Dosage: 50 UNK, UNK
     Route: 030
     Dates: start: 20110101, end: 20110101

REACTIONS (9)
  - FEELING HOT [None]
  - MALAISE [None]
  - DEPRESSED LEVEL OF CONSCIOUSNESS [None]
  - LOSS OF CONSCIOUSNESS [None]
  - GAIT DISTURBANCE [None]
  - BRADYCARDIA [None]
  - MEMORY IMPAIRMENT [None]
  - AMNESTIC DISORDER [None]
  - BLOOD PRESSURE DECREASED [None]
